FAERS Safety Report 5286944-X (Version None)
Quarter: 2007Q2

REPORT INFORMATION
  Report Type: 
  Country: None (occurrence: None)
  Receive Date: 20070404
  Receipt Date: 20070330
  Transmission Date: 20071010
  Serious: Yes (Death)
  Sender: FDA-Public Use
  Company Number: US-GENENTECH-236706

PATIENT
  Sex: Female

DRUGS (4)
  1. RANIBIZUMAB [Suspect]
     Indication: MACULAR DEGENERATION
     Route: 031
     Dates: start: 20060317
  2. ENALAPRIL MALEATE [Concomitant]
     Indication: HYPERTENSION
     Dates: start: 19960101
  3. TOPROL-XL [Concomitant]
     Indication: HYPERTENSION
     Dates: start: 19960101
  4. ASPIRIN [Concomitant]
     Indication: PROPHYLAXIS

REACTIONS (1)
  - ADENOCARCINOMA [None]
